FAERS Safety Report 10232426 (Version 1)
Quarter: 2014Q2

REPORT INFORMATION
  Report Type: Spontaneous
  Country: US (occurrence: NO)
  Receive Date: 20140612
  Receipt Date: 20140612
  Transmission Date: 20141212
  Serious: Yes (Death, Hospitalization)
  Sender: FDA-Public Use
  Company Number: 2014SP003167

PATIENT
  Age: 64 Year
  Sex: Female

DRUGS (4)
  1. METHOTREXATE [Suspect]
     Indication: RHEUMATOID ARTHRITIS
  2. METHOTREXATE [Suspect]
     Indication: PSORIASIS
  3. HYDROXYCHLOROQUINE PHOSPHATE [Concomitant]
     Indication: RHEUMATOID ARTHRITIS
  4. HYDROXYCHLOROQUINE PHOSPHATE [Concomitant]
     Indication: PSORIASIS

REACTIONS (8)
  - Acute respiratory failure [Fatal]
  - Acute respiratory distress syndrome [Unknown]
  - Pulmonary oedema [Unknown]
  - Hypoxia [Unknown]
  - Pneumocystis jirovecii infection [Unknown]
  - Renal impairment [Unknown]
  - Blood creatinine increased [Unknown]
  - Blood urea increased [Unknown]
